FAERS Safety Report 17500953 (Version 1)
Quarter: 2020Q1

REPORT INFORMATION
  Report Type: Spontaneous
  Country: GB (occurrence: GB)
  Receive Date: 20200305
  Receipt Date: 20200305
  Transmission Date: 20200409
  Serious: Yes (Death)
  Sender: FDA-Public Use
  Company Number: GB-CHIESI USA, INC.-GB-2020CHI000119

PATIENT

DRUGS (2)
  1. TOBRAMYCIN. [Suspect]
     Active Substance: TOBRAMYCIN
     Indication: BRONCHIECTASIS
     Dosage: UNK, BID
     Route: 055
     Dates: start: 2019
  2. TOBRAMYCIN. [Suspect]
     Active Substance: TOBRAMYCIN
     Indication: OFF LABEL USE

REACTIONS (2)
  - Death [Fatal]
  - Off label use [Unknown]

NARRATIVE: CASE EVENT DATE: 2019
